FAERS Safety Report 21389117 (Version 1)
Quarter: 2022Q3

REPORT INFORMATION
  Report Type: Report from Study
  Country: DE (occurrence: DE)
  Receive Date: 20220929
  Receipt Date: 20220929
  Transmission Date: 20221026
  Serious: Yes (Other)
  Sender: FDA-Public Use
  Company Number: DE-CELLTRION INC.-2021DE005330

PATIENT

DRUGS (12)
  1. TRASTUZUMAB [Suspect]
     Active Substance: TRASTUZUMAB
     Indication: Breast cancer
     Dosage: 504 MG, LAST DOSE OF TRASTUZUMAB PRIOR TO EVENT WAS ON 15/SEP/2020
     Route: 065
     Dates: start: 20200815
  2. TRASTUZUMAB [Suspect]
     Active Substance: TRASTUZUMAB
     Dosage: 693 MG
     Route: 065
     Dates: start: 20200825
  3. TRASTUZUMAB [Suspect]
     Active Substance: TRASTUZUMAB
     Dosage: 504 MG
     Route: 065
     Dates: start: 20201006
  4. TRASTUZUMAB [Suspect]
     Active Substance: TRASTUZUMAB
     Dosage: 483 MG, LAST DOSE OF PRIOR TO THE ADVERSE EVENT 29/JUL/2021
  5. TRASTUZUMAB [Suspect]
     Active Substance: TRASTUZUMAB
     Dosage: 525 MG, LAST DOSE OF PRIOR TO THE ADVERSE EVENT 28/OCT/2021
  6. PERTUZUMAB [Suspect]
     Active Substance: PERTUZUMAB
     Indication: Breast cancer
     Dosage: 840 MG
     Route: 065
     Dates: start: 20200825, end: 20200825
  7. PERTUZUMAB [Suspect]
     Active Substance: PERTUZUMAB
     Dosage: 420 MG, LAST DOSE OF PERTUZUMAB PRIOR TO EVENT WAS ON 15/SEP/2020
     Route: 065
     Dates: start: 20200915, end: 20220310
  8. PERTUZUMAB [Suspect]
     Active Substance: PERTUZUMAB
     Dosage: 420 MG
     Route: 065
     Dates: start: 20201006
  9. PERTUZUMAB [Suspect]
     Active Substance: PERTUZUMAB
     Dosage: 420 MG, LAST DOSE OF PRIOR TO THE ADVERSE EVENT 28/OCT/2021 PER CYCLE
     Route: 065
  10. PERTUZUMAB [Suspect]
     Active Substance: PERTUZUMAB
     Dosage: 420 MG, LAST DOSE OF PRIOR TO THE ADVERSE EVENT 29/JUL/2021
     Route: 065
  11. ADO-TRASTUZUMAB EMTANSINE [Suspect]
     Active Substance: ADO-TRASTUZUMAB EMTANSINE
     Indication: Breast cancer
     Dosage: 320 MILLIGRAM, DATE OF LAST APPLICATION PRIOR EVENT: 02/JUN/2022
     Route: 042
     Dates: start: 20220331
  12. ADO-TRASTUZUMAB EMTANSINE [Suspect]
     Active Substance: ADO-TRASTUZUMAB EMTANSINE
     Dosage: 340 MILLIGRAM, DATE OF LAST APPLICATION PRIOR EVENT: 21/APR/2022
     Route: 042
     Dates: start: 20220331

REACTIONS (17)
  - Neuropathy peripheral [Unknown]
  - Urinary incontinence [Recovered/Resolved]
  - Dyspnoea exertional [Recovered/Resolved]
  - Disturbance in attention [Recovered/Resolved]
  - Visual impairment [Recovered/Resolved]
  - Rash [Recovered/Resolved]
  - Epistaxis [Unknown]
  - Diarrhoea [Recovered/Resolved]
  - Dry skin [Recovered/Resolved]
  - Dyspnoea [Recovered/Resolved]
  - Diarrhoea [Recovered/Resolved]
  - Rash maculo-papular [Recovered/Resolved]
  - Pruritus [Recovered/Resolved]
  - Fatigue [Recovered/Resolved]
  - Nausea [Recovered/Resolved]
  - Headache [Recovered/Resolved]
  - Off label use [Unknown]

NARRATIVE: CASE EVENT DATE: 20200915
